FAERS Safety Report 8010537-4 (Version None)
Quarter: 2011Q4

REPORT INFORMATION
  Report Type: 
  Country: None (occurrence: None)
  Receive Date: 20111228
  Receipt Date: 20111221
  Transmission Date: 20120403
  Serious: Yes (Hospitalization, Other)
  Sender: FDA-Public Use
  Company Number: PHHY2011AU88659

PATIENT
  Sex: Female

DRUGS (29)
  1. METOPROLOL TARTRATE [Concomitant]
     Dosage: 1 DF, QD
     Route: 048
  2. LOCERYL [Concomitant]
  3. SOLPRIN [Concomitant]
     Dosage: 2 DF, QID
     Route: 048
  4. KAPANOL [Concomitant]
     Dosage: 40 MG, UNK
  5. SIMVASTATIN [Concomitant]
     Dosage: 1 DF, QD
  6. DYAZIDE [Concomitant]
     Dosage: 1 DF, UNK
  7. CODALGIN FORTE [Concomitant]
     Dosage: 2 DF, UNK
  8. SOFRADEX [Concomitant]
     Dosage: 2 DRP, UNK
  9. STEMETIL [Concomitant]
     Dosage: 1 DF, TID
     Route: 048
  10. KAPANOL [Concomitant]
     Dosage: 20 MG, UNK
  11. ACETAMINOPHEN W/ CODEINE [Concomitant]
     Dosage: 1 TSP, QID
     Route: 048
  12. PANAMAX [Concomitant]
     Dosage: 2 DF, QID
     Route: 048
  13. PROGYNOVA [Concomitant]
     Indication: HORMONE REPLACEMENT THERAPY
     Dosage: 1 DF, QD
     Route: 048
  14. SANDOMIGRAN [Concomitant]
     Dosage: 2 DF, UNK
  15. ZOCOR [Concomitant]
     Dosage: 1 DF, UNK
     Route: 048
  16. DYMADON [Concomitant]
     Indication: PAIN
     Dosage: 2 TSP, Q6H
  17. PRAMIN [Concomitant]
     Dosage: 1 DF, BID
     Route: 048
  18. QUINACT [Concomitant]
     Dosage: 1 DF, PRN
     Route: 048
  19. FENTANYL [Concomitant]
     Indication: PAIN
  20. FUROSEMIDE [Concomitant]
     Dosage: 1 DF, UNK
  21. MAXOLON [Concomitant]
     Dosage: 1 DF, UNK
  22. CALCIUM CARBONATE [Concomitant]
     Dosage: 1 DF, UNK
     Route: 048
  23. NEURONTIN [Concomitant]
     Dosage: 1 TSP, UNK
     Route: 048
  24. GABAPENTIN [Concomitant]
     Indication: NEURALGIA
     Dosage: 1 DF, TID
  25. KAPANOL [Concomitant]
     Dosage: 50 MG, UNK
  26. ZOLEDRONOC ACID [Suspect]
     Dosage: 5 MG/ 100 ML
     Route: 042
     Dates: start: 20101019
  27. PAROXETINE HCL [Concomitant]
     Dosage: 1 DF, TID
     Route: 048
  28. FOSAMAX PLUS D [Concomitant]
     Dosage: 1 TSP, QW
     Route: 048
  29. PANTOPRAZOLE [Concomitant]
     Dosage: 1 DF, BID
     Route: 048

REACTIONS (18)
  - CLOSTRIDIUM DIFFICILE COLITIS [None]
  - SYNOVIAL CYST [None]
  - EXOSTOSIS [None]
  - MOBILITY DECREASED [None]
  - LYMPHOEDEMA [None]
  - NAIL INFECTION [None]
  - GAMMA-GLUTAMYLTRANSFERASE INCREASED [None]
  - DELIRIUM [None]
  - DYSARTHRIA [None]
  - PLANTAR FASCIITIS [None]
  - CONFUSIONAL STATE [None]
  - ANAEMIA [None]
  - OEDEMA PERIPHERAL [None]
  - TYPE 2 DIABETES MELLITUS [None]
  - CHEST PAIN [None]
  - OSTEOARTHRITIS [None]
  - RENAL FAILURE ACUTE [None]
  - ASPARTATE AMINOTRANSFERASE INCREASED [None]
